FAERS Safety Report 15214893 (Version 1)
Quarter: 2018Q3

REPORT INFORMATION
  Report Type: Spontaneous
  Country: US (occurrence: US)
  Receive Date: 20180730
  Receipt Date: 20180730
  Transmission Date: 20181010
  Serious: No
  Sender: FDA-Public Use
  Company Number: US-ELEFSEE PHARMACEUTICALS INTERNATIONAL-US-2018WTD001067

PATIENT

DRUGS (2)
  1. LAZANDA [Suspect]
     Active Substance: FENTANYL CITRATE
     Indication: CANCER PAIN
     Dosage: 1 SPRAY IN EACH NOSTRIL TWICE DAILY
     Route: 045
     Dates: end: 201711
  2. LAZANDA [Suspect]
     Active Substance: FENTANYL CITRATE
     Indication: HEREDITARY MOTOR AND SENSORY NEUROPATHY
     Dosage: 1 SPRAY IN EACH NOSTRIL TWICE DAILY
     Route: 045
     Dates: start: 201711

REACTIONS (1)
  - Product use in unapproved indication [Not Recovered/Not Resolved]
